FAERS Safety Report 8198341 (Version 2)
Quarter: 2012Q4

REPORT INFORMATION
  Report Type: 
  Country: US (occurrence: US)
  Receive Date: 20111025
  Receipt Date: 20121005
  Transmission Date: 20130627
  Serious: Yes (Hospitalization)
  Sender: FDA-Public Use
  Company Number: US-US-EMD SERONO, INC.-7089649

PATIENT
  Sex: Female
  Weight: 92 kg

DRUGS (5)
  1. REBIF [Suspect]
     Indication: MULTIPLE SCLEROSIS
     Route: 058
     Dates: start: 20110813, end: 20110926
  2. REBIF [Suspect]
     Route: 058
     Dates: start: 20111009
  3. IBUPROFEN [Concomitant]
     Indication: HEADACHE
  4. IBUPROFEN [Concomitant]
     Indication: PREMEDICATION
  5. IMITREX [Concomitant]
     Indication: HEADACHE

REACTIONS (2)
  - Spinal cord neoplasm [Recovered/Resolved]
  - Hypersensitivity [Recovered/Resolved]
